FAERS Safety Report 7430277-X (Version None)
Quarter: 2011Q2

REPORT INFORMATION
  Report Type: 
  Country: None (occurrence: None)
  Receive Date: 20110421
  Receipt Date: 20110414
  Transmission Date: 20111010
  Serious: Yes (Hospitalization)
  Sender: FDA-Public Use
  Company Number: US-US-EMD SERONO, INC.-7052797

PATIENT
  Sex: Female

DRUGS (3)
  1. KLONOPIN [Concomitant]
  2. BACLOFEN [Concomitant]
     Dates: end: 20110401
  3. REBIF [Suspect]
     Indication: MULTIPLE SCLEROSIS
     Route: 058
     Dates: start: 20090413, end: 20110401

REACTIONS (14)
  - GAIT DISTURBANCE [None]
  - DYSPNOEA [None]
  - MUSCLE SPASMS [None]
  - FATIGUE [None]
  - LIP SWELLING [None]
  - LIMB DISCOMFORT [None]
  - OPTIC NEURITIS [None]
  - VIITH NERVE PARALYSIS [None]
  - ERYTHEMA [None]
  - BLISTER [None]
  - PARTIAL SEIZURES [None]
  - FALL [None]
  - ASTHENIA [None]
  - INJECTION SITE ERYTHEMA [None]
